FAERS Safety Report 11144461 (Version 1)
Quarter: 2015Q2

REPORT INFORMATION
  Report Type: Spontaneous
  Country: US (occurrence: None)
  Receive Date: 20150526
  Receipt Date: 20150526
  Transmission Date: 20150821
  Serious: Yes (Death, Hospitalization)
  Sender: FDA-Public Use
  Company Number: INS201505-000207

PATIENT
  Age: 58 Year
  Sex: Female

DRUGS (1)
  1. SUBSYS [Suspect]
     Active Substance: FENTANYL
     Dates: start: 20150324, end: 20150506

REACTIONS (2)
  - Oncologic complication [None]
  - Breast cancer [None]

NARRATIVE: CASE EVENT DATE: 20150508
